FAERS Safety Report 13781532 (Version 1)
Quarter: 2017Q3

REPORT INFORMATION
  Report Type: Spontaneous
  Country: CN (occurrence: CN)
  Receive Date: 20170724
  Receipt Date: 20170724
  Transmission Date: 20171127
  Serious: Yes (Hospitalization)
  Sender: FDA-Public Use
  Company Number: PHHY2017CN107731

PATIENT
  Age: 65 Year
  Sex: Male
  Weight: 60 kg

DRUGS (2)
  1. SODIUM CHLORIDE. [Concomitant]
     Active Substance: SODIUM CHLORIDE
     Indication: PORTAL HYPERTENSION
     Dosage: 100 ML, TID
     Route: 041
     Dates: start: 20170420, end: 20170428
  2. OCTREOTIDE. [Suspect]
     Active Substance: OCTREOTIDE
     Indication: PORTAL HYPERTENSION
     Dosage: 0.3 MG, TID
     Route: 041
     Dates: start: 20170420, end: 20170428

REACTIONS (1)
  - Hepatocellular injury [Recovering/Resolving]

NARRATIVE: CASE EVENT DATE: 20170427
